FAERS Safety Report 12991032 (Version 1)
Quarter: 2016Q4

REPORT INFORMATION
  Report Type: Spontaneous
  Country: US (occurrence: US)
  Receive Date: 20161201
  Receipt Date: 20161201
  Transmission Date: 20170207
  Serious: Yes (Hospitalization, Other)
  Sender: FDA-Public Use
  Company Number: US-BAXTER-2016BAX059676

PATIENT
  Age: 21 Year
  Sex: Male
  Weight: 94.3 kg

DRUGS (38)
  1. PEG/L-ASPARAGINASE [Suspect]
     Active Substance: PEGASPARGASE
     Dosage: PEDIATRIC REGIMEN, INTENSIFICATION PHASE 2, 2000 U/M2 , IV OVER 1-2 HOURS ON DAY 16
     Route: 042
  2. MTX [Suspect]
     Active Substance: METHOTREXATE SODIUM
     Dosage: PEDIATRIC REGIMEN (INTENSIFICATION PHASE 1) 3.5 G/M2, IV OVER 3 HOURS, DAYS 1 AND 15
     Route: 042
  3. MTX [Suspect]
     Active Substance: METHOTREXATE SODIUM
     Dosage: IRB PROTOCOL (INDUCTION PHASE 1), DAYS 8 AND 15
     Route: 037
  4. MERCAPTOPURINE. [Suspect]
     Active Substance: MERCAPTOPURINE
     Dosage: IRB PROTOCOL, INDUCTION PHASE 2, DAYS 1-14 AND 29-42
     Route: 048
  5. DAUNORUBICIN [Suspect]
     Active Substance: DAUNORUBICIN
     Indication: ACUTE LYMPHOCYTIC LEUKAEMIA RECURRENT
     Dosage: PEDIATRIC REGIMEN (INDUCTION PHASE 1), DAYS 1,2,3
     Route: 042
  6. DAUNORUBICIN [Suspect]
     Active Substance: DAUNORUBICIN
     Dosage: IRB PROTOCOL (INDUCTION PHASE 1), DAYS 1,2,3
     Route: 042
  7. VINCRISTINE [Suspect]
     Active Substance: VINCRISTINE
     Dosage: IRB PROTOCOL, INDUCTION PHASE 1, IV PUSH, ON DAYS 1, 15, 29 AND 43
     Route: 042
  8. VINCRISTINE [Suspect]
     Active Substance: VINCRISTINE
     Dosage: IRB PROTOCOL, INDUCTION PHASE 2, IV PUSH, ON DAYS 1, 15, 29 AND 43
     Route: 042
  9. PREDNISONE. [Suspect]
     Active Substance: PREDNISONE
     Indication: ACUTE LYMPHOCYTIC LEUKAEMIA RECURRENT
     Dosage: PEDIATRIC REGIMEN (INDUCTION PHASE 1), ON DAYS 1-28
     Route: 048
  10. MTX [Suspect]
     Active Substance: METHOTREXATE SODIUM
     Dosage: IRB PROTOCOL (INDUCTION PHASE 2), DAYS 1, 15, 29 AND 43
     Route: 037
  11. ETOPOSIDE. [Suspect]
     Active Substance: ETOPOSIDE
     Indication: BONE MARROW CONDITIONING REGIMEN
     Route: 065
  12. POSACONAZOLE [Concomitant]
     Active Substance: POSACONAZOLE
     Indication: PRODUCT USED FOR UNKNOWN INDICATION
     Dosage: 3 TABLETS
     Route: 048
  13. CYTARABINE. [Suspect]
     Active Substance: CYTARABINE
     Dosage: IRB PROTOCOL, INDUCTION PHASE 2, INTRAVENOUS PIGGYBACK (IVPB), ON DAYS 1-4, 8-11, 29-32 AND 36-39
     Route: 042
  14. LEUCOVORIN. [Suspect]
     Active Substance: LEUCOVORIN
     Indication: ACUTE LYMPHOCYTIC LEUKAEMIA RECURRENT
     Dosage: PEDIATRIC REGIMEN (INTENSIFICATION PHASE 1) BEGAN 24 HRS FROM START OF EACH MTX
     Route: 042
  15. BLINATUMOMAB [Suspect]
     Active Substance: BLINATUMOMAB
     Indication: ACUTE LYMPHOCYTIC LEUKAEMIA RECURRENT
     Route: 065
     Dates: start: 20161008
  16. PEG/L-ASPARAGINASE [Suspect]
     Active Substance: PEGASPARGASE
     Dosage: IRB PROTOCOL, INDUCTION PHASE 2, 2000 U/M2 , IV OVER 1-2 HOURS ON DAY 15
     Route: 042
  17. PREDNISONE. [Suspect]
     Active Substance: PREDNISONE
     Dosage: IRB PROTOCOL (INTENSIFICATION PHASE 2), ON DAYS 15-22
     Route: 048
  18. CYCLOPHOSPHAMIDE FOR INJECTION, USP [Suspect]
     Active Substance: CYCLOPHOSPHAMIDE
     Dosage: IRB PROTOCOL, INDUCTION PHASE 2, 1 G/M2 INTRAVENOUS PIGGYBACK (IVPB), DAYS 1 AND 29
     Route: 042
  19. PREDNISONE. [Suspect]
     Active Substance: PREDNISONE
     Dosage: PEDIATRIC REGIMEN (INTENSIFICATION PHASE 2), ON DAYS 15-22
     Route: 048
  20. MTX [Suspect]
     Active Substance: METHOTREXATE SODIUM
     Dosage: PEDIATRIC REGIMEN (INDUCTION PHASE 2), DAYS 1, 15, 29 AND 43
     Route: 037
  21. DAPSONE. [Concomitant]
     Active Substance: DAPSONE
     Indication: PRODUCT USED FOR UNKNOWN INDICATION
     Dosage: 1 TABLET
     Route: 048
  22. CYCLOPHOSPHAMIDE FOR INJECTION, USP [Suspect]
     Active Substance: CYCLOPHOSPHAMIDE
     Indication: ACUTE LYMPHOCYTIC LEUKAEMIA RECURRENT
     Dosage: PEDIATRIC REGIMEN, INDUCTION PHASE 2, 1 G/M2 INTRAVENOUS PIGGYBACK (IVPB), DAYS 1 AND 29
     Route: 042
  23. VINCRISTINE [Suspect]
     Active Substance: VINCRISTINE
     Indication: ACUTE LYMPHOCYTIC LEUKAEMIA RECURRENT
     Dosage: PEDIATRIC REGIMEN, INDUCTION PHASE 1, IV PUSH, ON DAYS 1, 15, 29 AND 43
     Route: 042
  24. PEG/L-ASPARAGINASE [Suspect]
     Active Substance: PEGASPARGASE
     Indication: ACUTE LYMPHOCYTIC LEUKAEMIA RECURRENT
     Dosage: PEDIATRIC REGIMEN, INDUCTION PHASE 1, 2000 U/M2 , IV OVER 1-2 HOURS ON DAY 15
     Route: 042
  25. PEG/L-ASPARAGINASE [Suspect]
     Active Substance: PEGASPARGASE
     Dosage: PEDIATRIC REGIMEN, INDUCTION PHASE 2, 2000 U/M2 , IV OVER 1-2 HOURS ON DAY 15
     Route: 042
  26. PREDNISONE. [Suspect]
     Active Substance: PREDNISONE
     Dosage: IRB PROTOCOL (INDUCTION PHASE 1), ON DAYS 1-28
     Route: 048
  27. CYTARABINE. [Suspect]
     Active Substance: CYTARABINE
     Indication: ACUTE LYMPHOCYTIC LEUKAEMIA RECURRENT
     Dosage: PEDIATRIC REGIMEN, INDUCTION PHASE 2, INTRAVENOUS PIGGYBACK (IVPB), ON DAYS 1-4, 8-11, 29-32 AND 36-
     Route: 042
  28. VINCRISTINE [Suspect]
     Active Substance: VINCRISTINE
     Dosage: PEDIATRIC REGIMEN, INDUCTION PHASE 2, IV PUSH, ON DAYS 1, 15, 29 AND 43
     Route: 042
  29. PEG/L-ASPARAGINASE [Suspect]
     Active Substance: PEGASPARGASE
     Dosage: IRB PROTOCOL, INTENSIFICATION PHASE 2, 2000 U/M2 , IV OVER 1-2 HOURS ON DAY 16
     Route: 042
  30. PREDNISONE. [Suspect]
     Active Substance: PREDNISONE
     Dosage: PEDIATRIC REGIMEN (INDUCTION PHASE 2), ON DAYS 15-22
     Route: 048
  31. PREDNISONE. [Suspect]
     Active Substance: PREDNISONE
     Dosage: IRB PROTOCOL (INDUCTION PHASE 2), ON DAYS 15-22
     Route: 048
  32. VALACYCLOVIR HCL [Concomitant]
     Active Substance: VALACYCLOVIR HYDROCHLORIDE
     Indication: PRODUCT USED FOR UNKNOWN INDICATION
     Dosage: 1 TABLET
     Route: 048
  33. PEG/L-ASPARAGINASE [Suspect]
     Active Substance: PEGASPARGASE
     Dosage: IRB PROTOCOL, INDUCTION PHASE 1, 2000 U/M2 , IV OVER 1-2 HOURS ON DAY 15
     Route: 042
  34. MTX [Suspect]
     Active Substance: METHOTREXATE SODIUM
     Indication: ACUTE LYMPHOCYTIC LEUKAEMIA RECURRENT
     Dosage: PEDIATRIC REGIMEN (INDUCTION PHASE 1), DAYS 8 AND 15
     Route: 037
  35. MTX [Suspect]
     Active Substance: METHOTREXATE SODIUM
     Dosage: IRB PROTOCOL (INTENSIFICATION PHASE 1) 3.5 G/M2, IV OVER 3 HOURS, DAYS 1 AND 15
     Route: 042
  36. MERCAPTOPURINE. [Suspect]
     Active Substance: MERCAPTOPURINE
     Indication: ACUTE LYMPHOCYTIC LEUKAEMIA RECURRENT
     Dosage: PEDIATRIC REGIMEN, INDUCTION PHASE 2, DAYS 1-14 AND 29-42
     Route: 048
  37. LEUCOVORIN. [Suspect]
     Active Substance: LEUCOVORIN
     Dosage: IRB PROTOCOL (INTENSIFICATION PHASE 1) BEGAN 24 HRS FROM START OF EACH MTX
     Route: 042
  38. FLUOCINOLONE ACETONIDE. [Concomitant]
     Active Substance: FLUOCINOLONE ACETONIDE
     Indication: PRODUCT USED FOR UNKNOWN INDICATION
     Dosage: SOLUTION
     Route: 061

REACTIONS (22)
  - Acute lymphocytic leukaemia recurrent [Unknown]
  - Hyperlipidaemia [Unknown]
  - Gastrointestinal inflammation [Unknown]
  - Decreased appetite [Unknown]
  - Nausea [Unknown]
  - Nausea [Unknown]
  - Graft versus host disease in skin [Unknown]
  - Neutropenia [Recovered/Resolved]
  - Hypomagnesaemia [Recovered/Resolved]
  - Vomiting [Unknown]
  - Vomiting [Unknown]
  - Schizophrenia [Unknown]
  - Pancytopenia [Unknown]
  - Acute lymphocytic leukaemia recurrent [Unknown]
  - Febrile neutropenia [Unknown]
  - Vitiligo [Unknown]
  - Arthralgia [Recovered/Resolved]
  - Escherichia bacteraemia [Unknown]
  - Anorectal infection bacterial [Unknown]
  - Malignant neoplasm progression [Unknown]
  - Klebsiella infection [Unknown]
  - Epstein-Barr viraemia [Unknown]

NARRATIVE: CASE EVENT DATE: 201504
